FAERS Safety Report 9330795 (Version 1)
Quarter: 2013Q2

REPORT INFORMATION
  Report Type: Spontaneous
  Country: US (occurrence: None)
  Receive Date: 20130604
  Receipt Date: 20130604
  Transmission Date: 20140414
  Serious: No
  Sender: FDA-Public Use
  Company Number: None

PATIENT
  Age: 66 Year
  Sex: Female
  Weight: 61.24 kg

DRUGS (1)
  1. LEXISCAN [Suspect]
     Indication: CARDIAC STRESS TEST
     Dates: start: 20130529, end: 20130529

REACTIONS (6)
  - Fatigue [None]
  - Headache [None]
  - Asthenia [None]
  - Tremor [None]
  - Pain [None]
  - Coordination abnormal [None]
